FAERS Safety Report 4583426-5 (Version None)
Quarter: 2005Q1

REPORT INFORMATION
  Report Type: 
  Country: None (occurrence: None)
  Receive Date: 20050211
  Receipt Date: 20050203
  Transmission Date: 20050727
  Serious: Yes (Hospitalization)
  Sender: FDA-Public Use
  Company Number: 2005025625

PATIENT
  Age: 43 Year
  Sex: Female

DRUGS (2)
  1. CLINDAMYCIN PHOSPHATE [Suspect]
     Indication: ERYSIPELAS
     Dosage: INTRAVENOUS
     Route: 042
     Dates: start: 20050113, end: 20050117
  2. CLINDAMYCIN HYDROCHLORIDE [Suspect]
     Indication: ERYSIPELAS
     Dosage: 900 MG (DAILY), ORAL
     Route: 048
     Dates: start: 20050118, end: 20050122

REACTIONS (2)
  - PHARYNGEAL OEDEMA [None]
  - STEVENS-JOHNSON SYNDROME [None]
